FAERS Safety Report 23125496 (Version 1)
Quarter: 2023Q4

REPORT INFORMATION
  Report Type: Spontaneous
  Country: US (occurrence: None)
  Receive Date: 20231030
  Receipt Date: 20231030
  Transmission Date: 20240109
  Serious: No
  Sender: FDA-Public Use
  Company Number: None

PATIENT
  Age: 59 Year
  Sex: Female
  Weight: 97.52 kg

DRUGS (1)
  1. TALTZ [Suspect]
     Active Substance: IXEKIZUMAB
     Indication: Psoriasis
     Dosage: FREQUENCY : EVERY OTHER WEEK;?INJECT 160 MG A9 2 SRINGES) SUBCUTANEOUSLY AT WEEK 0, THEN 80 MG( 1 SR
     Route: 058
     Dates: start: 202211

REACTIONS (1)
  - Arthralgia [None]
